FAERS Safety Report 4945476-6 (Version None)
Quarter: 2006Q1

REPORT INFORMATION
  Report Type: 
  Country: None (occurrence: None)
  Receive Date: 20060316
  Receipt Date: 20060310
  Transmission Date: 20060701
  Serious: Yes (Hospitalization)
  Sender: FDA-Public Use
  Company Number: FR-GLAXOSMITHKLINE-B0415444A

PATIENT
  Age: 61 Year
  Sex: Female
  Weight: 59 kg

DRUGS (6)
  1. ZOPHREN [Suspect]
     Indication: NAUSEA
     Dosage: 96MG CUMULATIVE DOSE
     Route: 048
     Dates: start: 20051201
  2. FLUOROURACIL [Suspect]
     Indication: BREAST CANCER
     Dosage: 1635MG CUMULATIVE DOSE
     Route: 042
     Dates: start: 20051228
  3. FARMORUBICINE [Suspect]
     Indication: BREAST CANCER
     Dosage: 327MG CUMULATIVE DOSE
     Route: 042
     Dates: start: 20051228
  4. ENDOXAN [Suspect]
     Indication: BREAST CANCER
     Dosage: 1635MG CUMULATIVE DOSE
     Route: 042
     Dates: start: 20051228
  5. ANAUSIN [Suspect]
     Indication: NAUSEA
     Route: 048
     Dates: start: 20051228
  6. SOLUPRED [Concomitant]
     Indication: NAUSEA
     Route: 065
     Dates: start: 20051201

REACTIONS (3)
  - CIRCULATORY COLLAPSE [None]
  - PULSE ABSENT [None]
  - SYNCOPE VASOVAGAL [None]
